FAERS Safety Report 9457365 (Version 1)
Quarter: 2013Q3

REPORT INFORMATION
  Report Type: Spontaneous
  Country: JP (occurrence: None)
  Receive Date: 20130812
  Receipt Date: 20130812
  Transmission Date: 20140515
  Serious: Yes (Hospitalization)
  Sender: FDA-Public Use
  Company Number: 2013SGN00472

PATIENT
  Age: 47 Year
  Sex: 0
  Weight: 78.7 kg

DRUGS (4)
  1. STUDY DRUG [Suspect]
     Indication: T-CELL LYMPHOMA
     Dates: start: 20130710, end: 20130710
  2. CYCLOPHOSPHAMIDE [Suspect]
     Indication: T-CELL LYMPHOMA
     Route: 042
     Dates: start: 20130710, end: 20130710
  3. DOXORUBICIN [Suspect]
     Indication: T-CELL LYMPHOMA
     Dates: start: 20130710, end: 20130710
  4. PREDNISONE [Suspect]
     Indication: T-CELL LYMPHOMA
     Dosage: QCYCLE
     Route: 048
     Dates: start: 20130710, end: 20130714

REACTIONS (1)
  - Hepatic function abnormal [None]
